FAERS Safety Report 7230597-8 (Version None)
Quarter: 2011Q1

REPORT INFORMATION
  Report Type: 
  Country: None (occurrence: None)
  Receive Date: 20110118
  Receipt Date: 20110111
  Transmission Date: 20110831
  Serious: Yes (Other)
  Sender: FDA-Public Use
  Company Number: PHHY2011GR01954

PATIENT
  Age: 35 Year
  Sex: Male

DRUGS (2)
  1. EXTAVIA [Suspect]
     Dosage: 0.75 ML, UNK
  2. EXTAVIA [Suspect]
     Dosage: UNK
     Dates: start: 20101001

REACTIONS (4)
  - VISION BLURRED [None]
  - RASH GENERALISED [None]
  - OESOPHAGEAL PAIN [None]
  - FLUSHING [None]
